FAERS Safety Report 5635920-3 (Version None)
Quarter: 2008Q1

REPORT INFORMATION
  Report Type: 
  Country: None (occurrence: None)
  Receive Date: 20080219
  Receipt Date: 20080205
  Transmission Date: 20080703
  Serious: Yes (Other)
  Sender: FDA-Public Use
  Company Number: DSA_31398_2008

PATIENT
  Sex: Male

DRUGS (7)
  1. DILZEM RETARD - DILTIAZEM HYDROCHLORIDE [Suspect]
     Indication: ANGINA PECTORIS
     Dosage: 90 MG QD ORAL
     Route: 048
     Dates: start: 20070602, end: 20070701
  2. ATORVASTATIN CALCIUM [Suspect]
     Indication: ANGINA PECTORIS
     Dosage: 20 MG QD ORAL, DF
     Route: 048
     Dates: start: 20070602, end: 20070629
  3. FENOFIBRATE [Suspect]
     Indication: ANGINA PECTORIS
     Dosage: 267 MG QD ORAL
     Route: 048
     Dates: start: 20070602, end: 20070629
  4. NITROGLYCERIN [Concomitant]
  5. EFFOX LONG [Concomitant]
  6. ASPIRIN [Concomitant]
  7. MILURIT [Concomitant]

REACTIONS (3)
  - BLOOD CREATINE PHOSPHOKINASE INCREASED [None]
  - DRUG INTERACTION [None]
  - MYALGIA [None]
